FAERS Safety Report 9548425 (Version 1)
Quarter: 2013Q3

REPORT INFORMATION
  Report Type: Spontaneous
  Country: US (occurrence: None)
  Receive Date: 20130919
  Receipt Date: 20130919
  Transmission Date: 20140515
  Serious: Yes (Hospitalization)
  Sender: FDA-Public Use
  Company Number: 2013P1019169

PATIENT
  Age: 12 Month
  Sex: Male

DRUGS (4)
  1. GLYBURIDE [Suspect]
     Route: 048
     Dates: start: 20130520, end: 20130520
  2. WATER PILL [Suspect]
     Route: 048
     Dates: start: 20130520, end: 20130520
  3. CHOLESTEROL PILL [Concomitant]
     Route: 048
     Dates: start: 20130520, end: 20130520
  4. UNSPECIFIED INGREDIENT [Suspect]
     Route: 048
     Dates: start: 20130520, end: 20130520

REACTIONS (1)
  - Accidental exposure to product by child [None]
